FAERS Safety Report 14624526 (Version 1)
Quarter: 2018Q1

REPORT INFORMATION
  Report Type: Spontaneous
  Country: US (occurrence: US)
  Receive Date: 20180311
  Receipt Date: 20180311
  Transmission Date: 20180509
  Serious: Yes (Disabling, Other)
  Sender: FDA-Public Use
  Company Number: None

PATIENT
  Age: 46 Year
  Sex: Female
  Weight: 39.6 kg

DRUGS (4)
  1. ZANAFLEX [Concomitant]
     Active Substance: TIZANIDINE HYDROCHLORIDE
  2. RILUZOLE. [Concomitant]
     Active Substance: RILUZOLE
  3. RADICAVA [Suspect]
     Active Substance: EDARAVONE
     Indication: AMYOTROPHIC LATERAL SCLEROSIS
     Dosage: QUANTITY:1 BAG;OTHER FREQUENCY:2 BAGS PER DAY FOR; INTRAVENOUS?
     Route: 042
     Dates: start: 20171113, end: 20180306
  4. DRONABINOL. [Concomitant]
     Active Substance: DRONABINOL

REACTIONS (7)
  - Skin exfoliation [None]
  - Asthenia [None]
  - Oedema [None]
  - Oedema peripheral [None]
  - Disease progression [None]
  - Muscular weakness [None]
  - Therapy cessation [None]

NARRATIVE: CASE EVENT DATE: 20180305
